FAERS Safety Report 5436731-4 (Version None)
Quarter: 2007Q3

REPORT INFORMATION
  Report Type: 
  Country: None (occurrence: None)
  Receive Date: 20070831
  Receipt Date: 20070824
  Transmission Date: 20080115
  Serious: Yes (Life-Threatening)
  Sender: FDA-Public Use
  Company Number: ES-GENENTECH-245622

PATIENT
  Sex: Male
  Weight: 70 kg

DRUGS (8)
  1. RITUXIMAB [Suspect]
     Indication: CHRONIC LYMPHOCYTIC LEUKAEMIA
     Dosage: 500 MG/M2, Q4W
     Route: 042
     Dates: start: 20070416, end: 20070711
  2. FLUDARABINE PHOSPHATE [Suspect]
     Indication: CHRONIC LYMPHOCYTIC LEUKAEMIA
     Dosage: 75 MG/M2, Q4W
     Route: 042
     Dates: start: 20070417, end: 20070713
  3. CYCLOPHOSPHAMIDE [Suspect]
     Indication: CHRONIC LYMPHOCYTIC LEUKAEMIA
     Dosage: 750 MG/M2, Q4W
     Route: 042
     Dates: start: 20070417, end: 20070713
  4. ACYCLOVIR [Concomitant]
     Indication: DRUG USE FOR UNKNOWN INDICATION
     Dosage: 800 UNK, UNK
     Dates: start: 20070430
  5. COTRIM [Concomitant]
     Indication: DRUG USE FOR UNKNOWN INDICATION
     Dosage: 800 UNK, UNK
     Dates: start: 20070430
  6. OMEPRAZOLE [Concomitant]
     Indication: DRUG USE FOR UNKNOWN INDICATION
     Dosage: 20 UNK, UNK
     Dates: start: 20070409
  7. GLIPIZIDE [Concomitant]
     Indication: DRUG USE FOR UNKNOWN INDICATION
     Dates: start: 20070525
  8. METFORMIN HCL [Concomitant]
     Indication: DRUG USE FOR UNKNOWN INDICATION
     Dates: start: 20070525

REACTIONS (3)
  - CANDIDIASIS [None]
  - FEBRILE NEUTROPENIA [None]
  - SPUTUM CULTURE POSITIVE [None]
